FAERS Safety Report 10049956 (Version 2)
Quarter: 2014Q2

REPORT INFORMATION
  Report Type: Spontaneous
  Country: US (occurrence: US)
  Receive Date: 20140401
  Receipt Date: 20140404
  Transmission Date: 20141212
  Serious: Yes (Other)
  Sender: FDA-Public Use
  Company Number: US-RB-064282-14

PATIENT
  Age: 16 Year
  Sex: Male

DRUGS (1)
  1. DELSYM ADULT GRAPE [Suspect]
     Indication: EUPHORIC MOOD
     Dosage: INGESTED WHOLE BOTTLE
     Route: 048
     Dates: start: 20140322

REACTIONS (12)
  - Hypokalaemia [Recovered/Resolved]
  - Intentional overdose [Recovered/Resolved]
  - Drug abuse [Recovered/Resolved]
  - Hypoaesthesia [Recovered/Resolved]
  - Asthenia [Recovered/Resolved]
  - Dehydration [Recovered/Resolved]
  - Respiration abnormal [Recovered/Resolved]
  - Unevaluable event [Recovered/Resolved]
  - Feeling abnormal [Recovered/Resolved]
  - Somnolence [Recovered/Resolved]
  - Dizziness [Recovered/Resolved]
  - Vomiting [Recovered/Resolved]
